FAERS Safety Report 7113836-3 (Version None)
Quarter: 2010Q4

REPORT INFORMATION
  Report Type: 
  Country: None (occurrence: None)
  Receive Date: 20101119
  Receipt Date: 20101026
  Transmission Date: 20110411
  Serious: No
  Sender: FDA-Public Use
  Company Number: US-MERCK-1010USA03070B1

PATIENT
  Age: 0 Day
  Sex: Male

DRUGS (5)
  1. ISENTRESS [Suspect]
     Indication: ANTIRETROVIRAL THERAPY
     Route: 064
     Dates: start: 20091201
  2. TRUVADA [Suspect]
     Indication: ANTIRETROVIRAL THERAPY
     Route: 064
     Dates: start: 20091201
  3. SELZENTRY [Suspect]
     Indication: ANTIRETROVIRAL THERAPY
     Route: 064
     Dates: start: 20091201
  4. BARACLUDE [Suspect]
     Indication: ANTIRETROVIRAL THERAPY
     Route: 064
  5. RETROVIR [Suspect]
     Indication: ANTIRETROVIRAL THERAPY
     Route: 064
     Dates: start: 20100920, end: 20100921

REACTIONS (3)
  - DRUG EXPOSURE DURING PREGNANCY [None]
  - PYELOCALIECTASIS [None]
  - SMALL FOR DATES BABY [None]
